FAERS Safety Report 24046907 (Version 1)
Quarter: 2024Q3

REPORT INFORMATION
  Report Type: Spontaneous
  Country: CN (occurrence: CN)
  Receive Date: 20240703
  Receipt Date: 20240703
  Transmission Date: 20241017
  Serious: Yes (Other)
  Sender: PFIZER
  Company Number: CN-PFIZER INC-PV202400086332

PATIENT
  Age: 57 Year
  Sex: Male

DRUGS (1)
  1. LINEZOLID [Suspect]
     Active Substance: LINEZOLID
     Indication: Lymph node tuberculosis
     Dosage: 0.6 G, 1X/DAY
     Route: 048
     Dates: start: 20240521, end: 20240604

REACTIONS (7)
  - Lymphocyte count decreased [Recovering/Resolving]
  - Haemoglobin decreased [Unknown]
  - Platelet count decreased [Recovering/Resolving]
  - White blood cell count decreased [Unknown]
  - Neutrophil count decreased [Unknown]
  - Plateletcrit decreased [Unknown]
  - Off label use [Unknown]

NARRATIVE: CASE EVENT DATE: 20240521
